FAERS Safety Report 20514355 (Version 1)
Quarter: 2022Q1

REPORT INFORMATION
  Report Type: Spontaneous
  Country: US (occurrence: US)
  Receive Date: 20220224
  Receipt Date: 20220224
  Transmission Date: 20220423
  Serious: No
  Sender: FDA-Public Use
  Company Number: US-VYERA PHARMACEUTICALS, LLC-2021VYE00014

PATIENT
  Age: 27 Year
  Sex: Female
  Weight: 58.967 kg

DRUGS (10)
  1. DARAPRIM [Suspect]
     Active Substance: PYRIMETHAMINE
     Indication: Toxoplasmosis
     Dosage: 75 MG, 1X/DAY
     Route: 048
     Dates: start: 20210417, end: 2021
  2. CLINDAMYCIN [Suspect]
     Active Substance: CLINDAMYCIN
     Dosage: UNK
     Dates: start: 20210417, end: 202104
  3. CLINDAMYCIN [Suspect]
     Active Substance: CLINDAMYCIN
     Dosage: UNK, CHANGED THE TIME PATIENT TOOK CLINDAMYCIN
     Dates: start: 202104
  4. LEUCOVORIN [Concomitant]
     Active Substance: LEUCOVORIN
  5. GABAPENTIN [Concomitant]
     Active Substance: GABAPENTIN
  6. MEGACE [Concomitant]
     Active Substance: MEGESTROL ACETATE
  7. REMERON [Concomitant]
     Active Substance: MIRTAZAPINE
  8. PROMETHAZINE [Concomitant]
     Active Substance: PROMETHAZINE HYDROCHLORIDE
  9. RITALIN [Concomitant]
     Active Substance: METHYLPHENIDATE HYDROCHLORIDE
  10. GEODON [Concomitant]
     Active Substance: ZIPRASIDONE HYDROCHLORIDE\ZIPRASIDONE MESYLATE

REACTIONS (3)
  - Nausea [Recovered/Resolved]
  - Fatigue [Recovered/Resolved]
  - Off label use [Recovered/Resolved]

NARRATIVE: CASE EVENT DATE: 20210401
